FAERS Safety Report 6578780-9 (Version None)
Quarter: 2010Q1

REPORT INFORMATION
  Report Type: 
  Country: None (occurrence: None)
  Receive Date: 20100202
  Receipt Date: 20100119
  Transmission Date: 20100710
  Serious: Yes (Other)
  Sender: FDA-Public Use
  Company Number: 2010AL000512

PATIENT
  Age: 15 Year
  Sex: Female

DRUGS (2)
  1. MIRTAZAPINE [Suspect]
     Indication: INTENTIONAL SELF-INJURY
     Dosage: 90 MG;QD;PO
     Route: 048
  2. ZOPICLONE [Concomitant]

REACTIONS (5)
  - ASTHENIA [None]
  - DYSGEUSIA [None]
  - PSYCHOMOTOR RETARDATION [None]
  - SPEECH DISORDER [None]
  - VISUAL IMPAIRMENT [None]
